FAERS Safety Report 7530559-7 (Version None)
Quarter: 2011Q2

REPORT INFORMATION
  Report Type: 
  Country: None (occurrence: None)
  Receive Date: 20110607
  Receipt Date: 20100116
  Transmission Date: 20111010
  Serious: Yes (Death, Other)
  Sender: FDA-Public Use
  Company Number: US-BAYER-201011391NA

PATIENT
  Age: 51 Year
  Sex: Male

DRUGS (7)
  1. TRASYLOL [Suspect]
     Indication: CORONARY ARTERY BYPASS
  2. NITROGLYCERIN [Concomitant]
     Dosage: .2 MG, UNK
  3. NAPROSYN [Concomitant]
     Dosage: 550 MG, UNK
  4. TRASYLOL [Suspect]
     Indication: CARDIAC OPERATION
     Dosage: UNK
     Route: 042
     Dates: start: 19990101
  5. FUROSEMIDE [Concomitant]
     Dosage: 40 MG, UNK
  6. AMARYL [Concomitant]
     Dosage: 2 MG, UNK
  7. CARDIZEM CD [Concomitant]
     Dosage: 120 MG, UNK

REACTIONS (14)
  - CARDIAC DISORDER [None]
  - FEAR [None]
  - RENAL IMPAIRMENT [None]
  - DEPRESSION [None]
  - INJURY [None]
  - RENAL INJURY [None]
  - PAIN [None]
  - DEATH [None]
  - CEREBROVASCULAR ACCIDENT [None]
  - UNEVALUABLE EVENT [None]
  - ANHEDONIA [None]
  - ORGAN FAILURE [None]
  - RENAL FAILURE [None]
  - ANXIETY [None]
